FAERS Safety Report 24391606 (Version 1)
Quarter: 2024Q4

REPORT INFORMATION
  Report Type: Spontaneous
  Country: US (occurrence: None)
  Receive Date: 20241002
  Receipt Date: 20241002
  Transmission Date: 20250115
  Serious: No
  Sender: Public
  Company Number: None

PATIENT
  Age: 64 Year
  Sex: Male
  Weight: 86 kg

DRUGS (1)
  1. APIXABAN [Suspect]
     Active Substance: APIXABAN
     Indication: Pulmonary embolism
     Dosage: FREQUENCY : TWICE A DAY;?
     Route: 048

REACTIONS (6)
  - Haemorrhage [None]
  - Faeces discoloured [None]
  - Dizziness [None]
  - Stoma site haemorrhage [None]
  - Gastrointestinal stoma complication [None]
  - COVID-19 [None]

NARRATIVE: CASE EVENT DATE: 20230910
